FAERS Safety Report 14558802 (Version 1)
Quarter: 2018Q1

REPORT INFORMATION
  Report Type: Spontaneous
  Country: US (occurrence: US)
  Receive Date: 20180221
  Receipt Date: 20180221
  Transmission Date: 20180509
  Serious: No
  Sender: FDA-Public Use
  Company Number: US-TEVA-2018-US-860325

PATIENT

DRUGS (1)
  1. NACLN (NIACIN) [Suspect]
     Active Substance: NIACIN
     Route: 065

REACTIONS (1)
  - Hypersensitivity [Unknown]
